FAERS Safety Report 8489241-4 (Version None)
Quarter: 2012Q3

REPORT INFORMATION
  Report Type: 
  Country: None (occurrence: None)
  Receive Date: 20120705
  Receipt Date: 20120628
  Transmission Date: 20120928
  Serious: No
  Sender: FDA-Public Use
  Company Number: US-PFIZER INC-2012156166

PATIENT
  Sex: Male

DRUGS (2)
  1. NIACIN [Suspect]
     Dosage: UNK
  2. POTASSIUM PENICILLIN G [Suspect]
     Dosage: UNK

REACTIONS (2)
  - DERMATITIS [None]
  - DRUG HYPERSENSITIVITY [None]
